FAERS Safety Report 8833022 (Version 2)
Quarter: 2013Q1

REPORT INFORMATION
  Report Type: Spontaneous
  Country: US (occurrence: US)
  Receive Date: 20121010
  Receipt Date: 20130114
  Transmission Date: 20140127
  Serious: Yes (Other)
  Sender: FDA-Public Use
  Company Number: US-PFIZER INC-2012250207

PATIENT
  Age: 44 Year
  Sex: Female
  Weight: 77.1 kg

DRUGS (32)
  1. NEURONTIN [Suspect]
     Indication: DIABETIC NEUROPATHY
     Dosage: 2400 MG, DAILY
     Route: 048
  2. NEURONTIN [Suspect]
     Indication: TYPE 2 DIABETES MELLITUS
     Dosage: 300 MG, 4X/DAY
     Route: 048
     Dates: start: 20100611
  3. LASIX [Suspect]
     Indication: FLUID RETENTION
     Dosage: 40 MG, 2X/DAY
  4. METFORMIN [Concomitant]
     Indication: DIABETES MELLITUS
     Dosage: 1000 MG, 2X/DAY
     Route: 048
     Dates: start: 20100611
  5. METFORMIN [Concomitant]
     Indication: TYPE 2 DIABETES MELLITUS
  6. ADDERALL [Concomitant]
     Indication: ATTENTION DEFICIT/HYPERACTIVITY DISORDER
     Dosage: 20 MG, DAILY
  7. LISINOPRIL [Concomitant]
     Indication: HYPERTENSION
     Dosage: 40 MG, DAILY
     Route: 048
     Dates: start: 20100611
  8. LISINOPRIL [Concomitant]
     Indication: HYPERTENSION
  9. XANAX [Concomitant]
     Indication: ANXIETY
     Dosage: 0.5 MG, 3X/DAY
     Route: 048
  10. XANAX [Concomitant]
     Indication: PANIC ATTACK
  11. OMEPRAZOLE [Concomitant]
     Indication: GASTROOESOPHAGEAL REFLUX DISEASE
     Dosage: 20 MG, 2X/DAY
     Route: 048
     Dates: start: 20100611
  12. OMEPRAZOLE [Concomitant]
     Indication: ROUTINE HEALTH MAINTENANCE
  13. PROMETHAZINE [Concomitant]
     Indication: NAUSEA
     Dosage: 25 MG, DAILY
     Route: 048
     Dates: start: 20120605
  14. PROMETHAZINE [Concomitant]
     Indication: VOMITING
  15. SIMVASTATIN [Concomitant]
     Indication: BLOOD CHOLESTEROL INCREASED
     Dosage: 80 MG, DAILY
     Dates: start: 20100617
  16. SIMVASTATIN [Concomitant]
     Indication: HYPERCHOLESTEROLAEMIA
  17. LORATADINE [Concomitant]
     Indication: BRONCHITIS
     Dosage: 10 MG, 1X/DAY
     Route: 048
     Dates: start: 20110216
  18. LORATADINE [Concomitant]
     Dosage: 10 MG, 1X/DAY
     Route: 048
     Dates: start: 20110216
  19. AMPHETAM ASP/AMPHETAM SULF/DEXTROAMPHET SACC/DEXTROAMPHET SULF/ [Concomitant]
     Indication: ANXIETY DISORDER DUE TO A GENERAL MEDICAL CONDITION
     Dosage: 20 MG, TAKE 1 CAPSULE DAILY FOR ADHD
     Dates: start: 20100611
  20. AMPHETAM ASP/AMPHETAM SULF/DEXTROAMPHET SACC/DEXTROAMPHET SULF/ [Concomitant]
     Indication: PANIC ATTACK
  21. FUROSEMIDE [Concomitant]
     Indication: CARDIAC FAILURE CONGESTIVE
     Dosage: 40 MG, 2X/DAY
     Route: 048
     Dates: start: 20100611
  22. HYDROCHLOROTHIAZIDE [Concomitant]
     Indication: HYPERTENSION
     Dosage: 12.5 MG, TAKE ONE CAPSULE BY MOUTH EVERY DAY
     Route: 048
     Dates: start: 20100611
  23. HYDROCHLOROTHIAZIDE [Concomitant]
     Indication: CARDIAC FAILURE CONGESTIVE
  24. DIPHENOXYLATE W/ATROPINE SULFATE [Concomitant]
     Indication: DIARRHOEA
     Dosage: 2.5-0.025 MG, TAKE 1 TABLET 4 TIMES DAILY AS NEEDED
     Route: 048
     Dates: start: 20120504
  25. DIPHENOXYLATE W/ATROPINE SULFATE [Concomitant]
     Indication: ABDOMINAL PAIN
     Dosage: 2.5 MG, AS NEEDED
  26. TRAMADOL HYDROCHLORIDE [Concomitant]
     Indication: FIBROMYALGIA
     Dosage: 50 MG, 3X/DAY
  27. TRAMADOL HYDROCHLORIDE [Concomitant]
     Indication: PAIN
     Dosage: 50 MG, TAKE 1 TABLET EVERY 8 HOURS AS NEEDED
     Route: 048
     Dates: start: 20110822
  28. TRAMADOL HYDROCHLORIDE [Concomitant]
     Indication: INFLAMMATION
  29. ALPRAZOLAM [Concomitant]
     Indication: ROUTINE HEALTH MAINTENANCE
     Dosage: 0.5 MG, TAKE 1 TABLET 3 TIMES DAILY
     Route: 048
     Dates: start: 20100611
  30. ESTRADIOL [Concomitant]
     Indication: HORMONE REPLACEMENT THERAPY
     Dosage: 2 MG, 1X/DAY
  31. ESTRADIOL [Concomitant]
     Indication: ROUTINE HEALTH MAINTENANCE
     Dosage: 2 MG, TAKE ONE TABLET BY MOUTH EVERY DAY
     Route: 048
     Dates: start: 20100611
  32. FISH OIL [Concomitant]
     Indication: HYPERCHOLESTEROLAEMIA
     Dosage: 1000 MG, BID
     Route: 048
     Dates: start: 20101215

REACTIONS (13)
  - Colitis [Not Recovered/Not Resolved]
  - Blood potassium decreased [Unknown]
  - Oedema [Unknown]
  - Local swelling [Unknown]
  - Asthenia [Unknown]
  - Oropharyngeal pain [Unknown]
  - Headache [Unknown]
  - Pain in extremity [Unknown]
  - Back pain [Unknown]
  - Dizziness [Unknown]
  - Abdominal pain [Unknown]
  - Bone pain [Unknown]
  - Fatigue [Unknown]
